FAERS Safety Report 25687405 (Version 1)
Quarter: 2025Q3

REPORT INFORMATION
  Report Type: Spontaneous
  Country: SG (occurrence: SG)
  Receive Date: 20250816
  Receipt Date: 20250816
  Transmission Date: 20251021
  Serious: Yes (Hospitalization)
  Sender: PRINSTON PHARMACEUTICAL
  Company Number: SG-PRINSTON PHARMACEUTICAL INC.-2025PRN00268

PATIENT
  Age: 18 Year
  Sex: Female

DRUGS (4)
  1. QUETIAPINE [Suspect]
     Active Substance: QUETIAPINE
     Indication: Suicide attempt
  2. ESTAZOLAM [Suspect]
     Active Substance: ESTAZOLAM
     Indication: Suicide attempt
  3. VALPROATE [Suspect]
     Active Substance: VALPROIC ACID
     Indication: Suicide attempt
  4. SERTRALINE [Suspect]
     Active Substance: SERTRALINE HYDROCHLORIDE
     Indication: Suicide attempt

REACTIONS (2)
  - Encephalopathy [Recovered/Resolved]
  - Overdose [Recovered/Resolved]
